FAERS Safety Report 8268969 (Version 2)
Quarter: 2013Q2

REPORT INFORMATION
  Report Type: Spontaneous
  Country: US (occurrence: US)
  Receive Date: 20111130
  Receipt Date: 20130624
  Transmission Date: 20140414
  Serious: Yes (Hospitalization)
  Sender: FDA-Public Use
  Company Number: US-GLAXOSMITHKLINE-A0782963A

PATIENT
  Age: 44 Year
  Sex: Male
  Weight: 95.5 kg

DRUGS (3)
  1. AVANDIA [Suspect]
     Indication: DIABETES MELLITUS
     Dosage: 8MG PER DAY
     Route: 048
     Dates: start: 2005, end: 200701
  2. METFORMIN [Concomitant]
  3. LISINOPRIL [Concomitant]

REACTIONS (4)
  - Cerebrovascular accident [Unknown]
  - Carotid artery stenosis [Unknown]
  - Arteriosclerosis [Unknown]
  - Adverse event [Unknown]
